FAERS Safety Report 5522289-8 (Version None)
Quarter: 2007Q4

REPORT INFORMATION
  Report Type: 
  Country: None (occurrence: None)
  Receive Date: 20071120
  Receipt Date: 20071109
  Transmission Date: 20080405
  Serious: Yes (Other)
  Sender: FDA-Public Use
  Company Number: HQWYE471627JUL04

PATIENT
  Sex: Female

DRUGS (7)
  1. PREMPRO [Suspect]
     Indication: HORMONE REPLACEMENT THERAPY
  2. PREMARIN [Suspect]
  3. MEDROXYPROGESTERONE ACETATE [Suspect]
  4. MEDROXYPROGESTERONE ACETATE [Suspect]
  5. MEDROXYPROGESTERONE ACETATE [Suspect]
  6. ESTRADERM [Suspect]
  7. ESTRATEST [Suspect]

REACTIONS (5)
  - BREAST CANCER [None]
  - DEAFNESS [None]
  - DEPRESSION [None]
  - MACULOPATHY [None]
  - UTERINE LEIOMYOMA [None]
